FAERS Safety Report 6473176-2 (Version None)
Quarter: 2009Q4

REPORT INFORMATION
  Report Type: 
  Country: None (occurrence: None)
  Receive Date: 20091204
  Receipt Date: 20081117
  Transmission Date: 20100525
  Serious: No
  Sender: FDA-Public Use
  Company Number: US-ELI_LILLY_AND_COMPANY-US200806000265

PATIENT
  Sex: Female
  Weight: 60.771 kg

DRUGS (39)
  1. CYMBALTA [Suspect]
     Indication: DEPRESSION
     Dosage: 30 MG, UNK
     Dates: start: 20061101
  2. REMERON [Concomitant]
     Indication: DEPRESSION
     Dosage: 45 MG, UNK
  3. REMERON [Concomitant]
     Dosage: 50 MG, UNK
  4. XANAX [Concomitant]
  5. CLONAZEPAM [Concomitant]
     Indication: ANXIETY
     Dosage: 0.5 MG, UNK
  6. BENAZEPRIL HYDROCHLORIDE [Concomitant]
     Indication: HYPERTENSION
     Dosage: 40 MG, UNK
  7. METOPROLOL [Concomitant]
     Indication: HYPERTENSION
     Dosage: 25 MG, UNK
  8. BENICAR [Concomitant]
     Indication: HYPERTENSION
     Dosage: 40 MG, UNK
  9. ATENOLOL [Concomitant]
     Indication: HYPERTENSION
     Dosage: 50 MG, UNK
  10. OMACOR [Concomitant]
     Indication: BLOOD TRIGLYCERIDES
     Dosage: 1 G, UNK
  11. CLOPIDOGREL [Concomitant]
     Indication: ANTICOAGULANT THERAPY
     Dosage: 75 MG, UNK
  12. ASPIRIN [Concomitant]
     Indication: ANTICOAGULANT THERAPY
     Dosage: 81 MG, UNK
  13. CAPTOPRIL [Concomitant]
     Indication: HYPERTENSION
     Dosage: 6.25 MG, UNK
  14. GABAPENTIN [Concomitant]
     Indication: PAIN
     Dosage: 100 MG, UNK
  15. PERCOCET [Concomitant]
     Indication: PAIN
     Dosage: 5/325 MG
  16. TYLENOL                                 /SCH/ [Concomitant]
     Indication: PAIN
  17. VICODIN [Concomitant]
     Indication: PAIN
  18. DILAUDID [Concomitant]
     Indication: PAIN
     Dosage: 4 MG, UNK
  19. ZANTAC [Concomitant]
     Indication: NAUSEA
     Dosage: 25 MG, UNK
  20. ZANTAC [Concomitant]
     Dosage: 150 MG, UNK
  21. REGLAN [Concomitant]
  22. PERIACTIN [Concomitant]
     Indication: HYPERSENSITIVITY
     Dosage: 4 MG, UNK
  23. AVANDIA [Concomitant]
     Indication: BLOOD GLUCOSE
     Dosage: 4 MG, UNK
  24. METFORMIN HCL [Concomitant]
     Indication: BLOOD GLUCOSE
     Dosage: 1000 MG, UNK
  25. CELEBREX [Concomitant]
     Indication: ARTHRITIS
     Dosage: 100 MG, UNK
  26. PROTONIX [Concomitant]
     Indication: GASTROOESOPHAGEAL REFLUX DISEASE
     Dosage: 40 MG, UNK
  27. AUGMENTIN                               /SCH/ [Concomitant]
     Indication: INFECTION
     Dosage: 500 MG, UNK
  28. SEPTRA [Concomitant]
     Indication: INFECTION
     Dosage: 800/600 MG
  29. LEVAQUIN [Concomitant]
     Indication: INFECTION
     Dosage: 250 MG, UNK
  30. METRONIDAZOLE [Concomitant]
     Indication: URINARY TRACT INFECTION
     Dosage: 500 MG, UNK
  31. CIPROFLOXACIN [Concomitant]
     Indication: BACTERIAL INFECTION
     Dosage: 500 MG, UNK
  32. ZINC SULFATE [Concomitant]
  33. AMBIEN [Concomitant]
     Indication: SLEEP DISORDER
  34. MORPHINE [Concomitant]
     Indication: PAIN
  35. SENOKOT [Concomitant]
  36. ACYCLOVIR [Concomitant]
     Indication: HERPES VIRUS INFECTION
  37. ALBUTEROL [Concomitant]
  38. METHOTREXATE [Concomitant]
     Dosage: 1 D/F, UNK
     Dates: start: 20030624
  39. METHOTREXATE [Concomitant]
     Dosage: 28 MG, 3/W

REACTIONS (3)
  - BLOOD URINE PRESENT [None]
  - NEPHROLITHIASIS [None]
  - URINARY TRACT INFECTION [None]
